FAERS Safety Report 9112960 (Version 3)
Quarter: 2013Q1

REPORT INFORMATION
  Report Type: Spontaneous
  Country: JP (occurrence: JP)
  Receive Date: 20130211
  Receipt Date: 20130228
  Transmission Date: 20140127
  Serious: Yes (Other)
  Sender: FDA-Public Use
  Company Number: JP-ASTRAZENECA-2013SE08575

PATIENT
  Age: 66 Year
  Sex: Male
  Weight: 51 kg

DRUGS (5)
  1. NEXIUM [Suspect]
     Indication: GASTROOESOPHAGEAL REFLUX DISEASE
     Route: 048
     Dates: start: 20121207, end: 20130129
  2. OMEPRAL [Suspect]
     Indication: GASTROOESOPHAGEAL REFLUX DISEASE
     Route: 048
     Dates: start: 20091211, end: 20121206
  3. AMLODIN OD [Concomitant]
     Indication: HYPERTENSION
     Route: 048
     Dates: start: 200906
  4. PREMINENT [Concomitant]
     Indication: HYPERTENSION
     Dosage: EVERY DAY, DOSE UNKNOWN
     Route: 048
     Dates: start: 20110415
  5. CASODEX TABLET [Concomitant]
     Indication: PROSTATE CANCER
     Route: 048
     Dates: start: 20120306

REACTIONS (1)
  - Hepatic function abnormal [Recovered/Resolved]
